FAERS Safety Report 24050436 (Version 2)
Quarter: 2024Q3

REPORT INFORMATION
  Report Type: Report from Study
  Country: US (occurrence: US)
  Receive Date: 20240704
  Receipt Date: 20240806
  Transmission Date: 20241017
  Serious: No
  Sender: ALEXION PHARMACEUTICALS
  Company Number: US-AstraZeneca-CH-00655553A

PATIENT
  Sex: Female

DRUGS (1)
  1. ULTOMIRIS [Suspect]
     Active Substance: RAVULIZUMAB-CWVZ
     Indication: Myasthenia gravis
     Dosage: UNK
     Route: 065

REACTIONS (4)
  - Blood pressure abnormal [Unknown]
  - Gastrooesophageal reflux disease [Unknown]
  - Musculoskeletal discomfort [Unknown]
  - Nausea [Unknown]
